FAERS Safety Report 24101647 (Version 1)
Quarter: 2024Q3

REPORT INFORMATION
  Report Type: Spontaneous
  Country: US (occurrence: US)
  Receive Date: 20240717
  Receipt Date: 20240717
  Transmission Date: 20241017
  Serious: No
  Sender: AJANTA PHARMA
  Company Number: US-AJANTA-2024AJA00106

PATIENT
  Sex: Male

DRUGS (1)
  1. SILDENAFIL [Suspect]
     Active Substance: SILDENAFIL
     Indication: Product used for unknown indication

REACTIONS (2)
  - Malaise [Unknown]
  - Head discomfort [Unknown]
